FAERS Safety Report 6732958-X (Version None)
Quarter: 2010Q2

REPORT INFORMATION
  Report Type: 
  Country: None (occurrence: None)
  Receive Date: 20100517
  Receipt Date: 20100430
  Transmission Date: 20101027
  Serious: Yes (Hospitalization)
  Sender: FDA-Public Use
  Company Number: 2010001676

PATIENT
  Age: 51 Year
  Sex: Male

DRUGS (11)
  1. ERLOTINIB              (ERLOTINIB) (TABLET) [Suspect]
     Indication: COLON CANCER METASTATIC
     Dosage: 150 MG, ORAL
     Route: 048
     Dates: start: 20100111, end: 20100419
  2. BEVACIZUMAB [Suspect]
     Indication: COLON CANCER METASTATIC
     Dosage: 5 MG/KG, Q2W, INTRAVENOUS
     Route: 042
     Dates: start: 20100111, end: 20100419
  3. FLUOROURACIL [Suspect]
     Indication: COLON CANCER METASTATIC
     Dosage: Q2W, INTRAVENOUS
     Route: 042
     Dates: start: 20100111, end: 20100419
  4. LEUCOVORIN CALCIUM [Suspect]
     Indication: COLON CANCER METASTATIC
     Dosage: Q2W, INTRAVENOUS
     Route: 042
     Dates: start: 20100111, end: 20100419
  5. OXALIPLATIN [Suspect]
     Indication: COLON CANCER METASTATIC
     Dosage: Q2W, INTRAVENOUS
     Route: 042
     Dates: start: 20100111, end: 20100419
  6. NEXIUM [Concomitant]
  7. LOMOTIL [Concomitant]
  8. BMX COCKTAIL [Concomitant]
  9. COMPAZINE [Concomitant]
  10. ZOSYN [Concomitant]
  11. METRONIDAZOLE [Concomitant]

REACTIONS (5)
  - DECREASED APPETITE [None]
  - DIARRHOEA [None]
  - DYSPHAGIA [None]
  - DYSPNOEA EXERTIONAL [None]
  - NAUSEA [None]
